FAERS Safety Report 8957477 (Version 2)
Quarter: 2013Q1

REPORT INFORMATION
  Report Type: Spontaneous
  Country: CL (occurrence: None)
  Receive Date: 20121130
  Receipt Date: 20121228
  Transmission Date: 20140127
  Serious: Yes (Other)
  Sender: FDA-Public Use
  Company Number: 2012P1065580

PATIENT
  Sex: Male

DRUGS (1)
  1. MITOMYCIN [Suspect]
     Indication: TRANSITIONAL CELL CARCINOMA
     Route: 043

REACTIONS (6)
  - Dysuria [None]
  - Haematuria [None]
  - Bladder disorder [None]
  - Biopsy bladder abnormal [None]
  - Transitional cell carcinoma [None]
  - Neoplasm recurrence [None]
